FAERS Safety Report 12991811 (Version 2)
Quarter: 2017Q1

REPORT INFORMATION
  Report Type: Spontaneous
  Country: JP (occurrence: JP)
  Receive Date: 20161201
  Receipt Date: 20170124
  Transmission Date: 20170428
  Serious: Yes (Death, Life-Threatening)
  Sender: FDA-Public Use
  Company Number: JP-CELGENEUS-JPN-2016113529

PATIENT
  Age: 72 Year
  Sex: Female
  Weight: 61 kg

DRUGS (12)
  1. BAYASPIRIN [Concomitant]
     Active Substance: ASPIRIN
     Indication: CAROTID ARTERIOSCLEROSIS
     Dosage: MG
     Route: 048
     Dates: start: 20161103, end: 201611
  2. SINSERON [Concomitant]
     Active Substance: INDISETRON HYDROCHLORIDE
     Indication: PRODUCT USED FOR UNKNOWN INDICATION
     Dosage: MG
     Route: 048
     Dates: start: 20161102, end: 20161103
  3. OLMETEC [Concomitant]
     Active Substance: OLMESARTAN MEDOXOMIL
     Indication: HYPERTENSION
     Dosage: MG
     Route: 048
     Dates: start: 20161103, end: 201611
  4. NOVAMIN [Concomitant]
     Active Substance: PROCHLORPERAZINE MALEATE
     Indication: CANCER PAIN
     Dosage: MG
     Route: 048
     Dates: start: 20161029, end: 20161103
  5. ALOXI [Concomitant]
     Active Substance: PALONOSETRON HYDROCHLORIDE
     Indication: PRODUCT USED FOR UNKNOWN INDICATION
     Dosage: MG
     Route: 048
     Dates: start: 20161102, end: 20161102
  6. DECADRON [Concomitant]
     Active Substance: DEXAMETHASONE
     Indication: PRODUCT USED FOR UNKNOWN INDICATION
     Dosage: MG
     Route: 041
     Dates: start: 20161102, end: 20161102
  7. ABRAXANE [Suspect]
     Active Substance: PACLITAXEL
     Indication: PANCREATIC CARCINOMA METASTATIC
     Dosage: 195 MG
     Route: 041
     Dates: start: 20161102, end: 20161102
  8. GEMZAR [Concomitant]
     Active Substance: GEMCITABINE HYDROCHLORIDE
     Indication: PANCREATIC CARCINOMA METASTATIC
     Dosage: 1550 MG
     Route: 041
     Dates: start: 20161102, end: 20161102
  9. TENORMIN [Concomitant]
     Active Substance: ATENOLOL
     Indication: HYPERTENSION
     Dosage: MG
     Route: 048
     Dates: start: 20161103, end: 201611
  10. MAGNESIUM OXIDE. [Concomitant]
     Active Substance: MAGNESIUM OXIDE
     Indication: CANCER PAIN
     Dosage: MG
     Route: 048
     Dates: start: 20161029, end: 20161103
  11. OXYCONTIN [Concomitant]
     Active Substance: OXYCODONE HYDROCHLORIDE
     Indication: CANCER PAIN
     Dosage: MG
     Route: 048
     Dates: start: 20161029, end: 20161103
  12. PLATELETS [Concomitant]
     Active Substance: HUMAN PLATELET, ALLOGENIC
     Indication: PLATELET COUNT DECREASED
     Route: 041
     Dates: start: 20161108, end: 20161109

REACTIONS (2)
  - Cerebral artery embolism [Fatal]
  - Disseminated intravascular coagulation [Unknown]

NARRATIVE: CASE EVENT DATE: 20161103
